FAERS Safety Report 8838089 (Version 1)
Quarter: 2012Q4

REPORT INFORMATION
  Report Type: Report from Study
  Country: JP (occurrence: JP)
  Receive Date: 20121012
  Receipt Date: 20121012
  Transmission Date: 20130627
  Serious: Yes (Other)
  Sender: FDA-Public Use
  Company Number: JP-VERTEX PHARMACEUTICAL INC.-2012-022758

PATIENT
  Age: 56 Year
  Sex: Female

DRUGS (14)
  1. VX-950 [Suspect]
     Indication: HEPATITIS C
     Dosage: 1500 mg, UNK
     Route: 048
     Dates: start: 20120206, end: 20120430
  2. REBETOL [Suspect]
     Indication: HEPATITIS C
     Dosage: 600 mg, qd
     Route: 048
     Dates: start: 20120206, end: 20120305
  3. REBETOL [Suspect]
     Dosage: 200 mg, qd
     Route: 048
     Dates: start: 20120306, end: 20120521
  4. REBETOL [Suspect]
     Dosage: 300 mg, qd
     Route: 048
     Dates: start: 20120522, end: 20120604
  5. REBETOL [Suspect]
     Dosage: 400 mg, qd
     Route: 048
     Dates: start: 20120605, end: 20120618
  6. REBETOL [Suspect]
     Dosage: 600 mg, qd
     Route: 048
     Dates: start: 20120619, end: 20120716
  7. PEGINTRON                          /01543001/ [Suspect]
     Indication: HEPATITIS C
     Dosage: 1.5 UNK, qw
     Route: 058
     Dates: start: 20120206, end: 20120717
  8. MERCAZOLE [Concomitant]
     Dosage: 10 mg, qd
     Route: 048
     Dates: end: 20120312
  9. MERCAZOLE [Concomitant]
     Dosage: 5 mg, qd
     Route: 048
     Dates: start: 20120313, end: 20120409
  10. MERCAZOLE [Concomitant]
     Dosage: 2.5 mg, qd
     Route: 048
     Dates: start: 20120410, end: 20120430
  11. MERCAZOLE [Concomitant]
     Dosage: 5 mg, qd
     Route: 048
     Dates: start: 20120501, end: 20120604
  12. MERCAZOLE [Concomitant]
     Dosage: 10 mg, qd
     Route: 048
     Dates: start: 20120605
  13. LOXOPROFEN [Concomitant]
     Dosage: 60 mg, qd
     Route: 048
     Dates: start: 20120206, end: 20120304
  14. MUCOSTA [Concomitant]
     Dosage: 100 mg, UNK
     Route: 048
     Dates: start: 20120206, end: 20120304

REACTIONS (1)
  - White blood cell count decreased [Recovered/Resolved]
